FAERS Safety Report 7415369-3 (Version None)
Quarter: 2011Q2

REPORT INFORMATION
  Report Type: 
  Country: None (occurrence: None)
  Receive Date: 20110407
  Receipt Date: 20110325
  Transmission Date: 20111010
  Serious: Yes (Other)
  Sender: FDA-Public Use
  Company Number: US-1185542

PATIENT

DRUGS (1)
  1. BSS [Suspect]
     Dosage: (INTRAOCULAR)
     Route: 031

REACTIONS (1)
  - TOXIC ANTERIOR SEGMENT SYNDROME [None]
